FAERS Safety Report 6264872-0 (Version None)
Quarter: 2009Q3

REPORT INFORMATION
  Report Type: 
  Country: None (occurrence: None)
  Receive Date: 20090713
  Receipt Date: 20080328
  Transmission Date: 20100115
  Serious: Yes (Hospitalization, Other)
  Sender: FDA-Public Use
  Company Number: US-ASTRAZENECA-2006UW01649

PATIENT
  Age: 17840 Day
  Sex: Female
  Weight: 107.5 kg

DRUGS (33)
  1. SEROQUEL [Suspect]
     Indication: DEPRESSION
     Dosage: 200 MG - 400 MG
     Route: 048
     Dates: start: 20020601, end: 20020601
  2. SEROQUEL [Suspect]
     Indication: BIPOLAR DISORDER
     Dosage: 200 MG - 400 MG
     Route: 048
     Dates: start: 20020601, end: 20020601
  3. SEROQUEL [Suspect]
     Route: 048
     Dates: start: 20030307, end: 20060331
  4. SEROQUEL [Suspect]
     Route: 048
     Dates: start: 20030307, end: 20060331
  5. SEROQUEL [Suspect]
     Dosage: 100 MG - 200 MG
     Route: 048
     Dates: start: 20050101
  6. SEROQUEL [Suspect]
     Dosage: 100 MG - 200 MG
     Route: 048
     Dates: start: 20050101
  7. ABILIFY [Concomitant]
     Dates: start: 20060328
  8. CLOZARIL [Concomitant]
  9. GEODON [Concomitant]
     Dates: start: 20030521, end: 20060119
  10. EFFEXOR [Concomitant]
     Dates: start: 20020601
  11. ALBUTEROL [Concomitant]
     Dates: start: 20020601
  12. ATIVAN [Concomitant]
     Route: 030
     Dates: start: 20020601
  13. PREDNISONE TAB [Concomitant]
     Route: 048
     Dates: start: 20020601
  14. LIBRIUM [Concomitant]
     Dates: start: 20020604
  15. REMERON [Concomitant]
     Route: 048
     Dates: start: 20020605
  16. WELLBUTRIN [Concomitant]
     Route: 048
     Dates: start: 20020605
  17. DARVOCET [Concomitant]
     Dates: start: 20020606
  18. ZYPREXA [Concomitant]
     Dates: start: 20020601
  19. NAPROXEN [Concomitant]
     Dates: start: 20020606
  20. ATROVENT [Concomitant]
     Dates: start: 20041201
  21. PREVACID [Concomitant]
     Dates: start: 20041201
  22. MICARDIS HCT [Concomitant]
     Dosage: 80 MG - 125 MG
     Dates: start: 20041201
  23. ULTRAM [Concomitant]
     Dates: start: 20041201
  24. COMBIVENT [Concomitant]
     Dates: start: 20041201
  25. GENERIC CLARITIN [Concomitant]
     Dates: start: 20041201
  26. PRILOSEC [Concomitant]
     Dates: start: 20050411
  27. LESCOL XL [Concomitant]
     Dates: start: 20051019
  28. PEPCID [Concomitant]
     Dates: start: 20051019
  29. ADVAIR DISKUS 100/50 [Concomitant]
     Dates: start: 20051019
  30. LASIX [Concomitant]
     Dates: start: 20060124
  31. NICOTINE [Concomitant]
     Dates: start: 20051220
  32. AVANDIA [Concomitant]
     Dates: start: 20060911
  33. GLUCOPHAGE [Concomitant]
     Dates: start: 20060911

REACTIONS (13)
  - ASTHMA [None]
  - BRONCHITIS [None]
  - CHRONIC OBSTRUCTIVE PULMONARY DISEASE [None]
  - CHRONIC RESPIRATORY FAILURE [None]
  - COUGH [None]
  - DIABETES MELLITUS [None]
  - DYSPNOEA [None]
  - EMPHYSEMA [None]
  - HYPERGLYCAEMIA [None]
  - PRODUCTIVE COUGH [None]
  - RESPIRATORY FAILURE [None]
  - SLEEP APNOEA SYNDROME [None]
  - TYPE 2 DIABETES MELLITUS [None]
